FAERS Safety Report 5916281-9 (Version None)
Quarter: 2008Q4

REPORT INFORMATION
  Report Type: 
  Country: None (occurrence: None)
  Receive Date: 20081013
  Receipt Date: 20081006
  Transmission Date: 20090506
  Serious: Yes (Hospitalization, Disabling)
  Sender: FDA-Public Use
  Company Number: PHHY2008TW23824

PATIENT

DRUGS (3)
  1. CYCLOSPORINE [Suspect]
     Indication: PSORIASIS
     Dosage: UNK
     Dates: start: 20040202
  2. CYCLOSPORINE [Suspect]
     Dosage: UNK
     Dates: start: 20040216
  3. METHOTREXATE [Suspect]
     Indication: PSORIASIS

REACTIONS (5)
  - CEREBRAL HAEMORRHAGE [None]
  - HEMIPARESIS [None]
  - HYPERTENSION [None]
  - PHYSICAL DISABILITY [None]
  - SURGERY [None]
